FAERS Safety Report 22282527 (Version 2)
Quarter: 2023Q4

REPORT INFORMATION
  Report Type: Spontaneous
  Country: US (occurrence: US)
  Receive Date: 20230504
  Receipt Date: 20231107
  Transmission Date: 20240110
  Serious: No
  Sender: FDA-Public Use
  Company Number: US-SA-SAC20230502000671

PATIENT
  Age: 51 Year
  Sex: Female

DRUGS (6)
  1. DUPIXENT [Suspect]
     Active Substance: DUPILUMAB
     Indication: Dermatitis atopic
     Dosage: 300 MG, QOW
     Route: 058
     Dates: start: 20230405
  2. AZITHROMYCIN [Suspect]
     Active Substance: AZITHROMYCIN
     Indication: Inflammation
     Dosage: UNK
     Dates: start: 2023
  3. FLUCONAZOLE [Suspect]
     Active Substance: FLUCONAZOLE
     Indication: Inflammation
     Dosage: UNK
     Dates: start: 2023
  4. ESTRADIOL [Concomitant]
     Active Substance: ESTRADIOL
  5. IBUPROFEN [Concomitant]
     Active Substance: IBUPROFEN
  6. TOVET [Concomitant]

REACTIONS (6)
  - Hair texture abnormal [Unknown]
  - Inflammation [Unknown]
  - Sleep disorder [Unknown]
  - Palpitations [Unknown]
  - Injection site reaction [Unknown]
  - Drug ineffective [Unknown]

NARRATIVE: CASE EVENT DATE: 20230101
